FAERS Safety Report 6856046-7 (Version None)
Quarter: 2010Q3

REPORT INFORMATION
  Report Type: 
  Country: None (occurrence: None)
  Receive Date: 20100716
  Receipt Date: 20100716
  Transmission Date: 20110219
  Serious: Yes (Other)
  Sender: FDA-Public Use
  Company Number: None

PATIENT
  Sex: Female

DRUGS (2)
  1. PROMACTA [Suspect]
     Indication: THROMBOCYTOPENIA
     Dosage: PROMAETA 50 MG ONCE DAILY BY MOUTH
     Route: 048
     Dates: start: 20100520, end: 20100715
  2. PROMACTA [Suspect]
     Indication: THROMBOCYTOPENIA
     Dosage: PROMAETA 25 MG 50MG ONCE DAILY BY MOUTH
     Route: 048
     Dates: start: 20100715

REACTIONS (1)
  - PLATELET COUNT DECREASED [None]
